FAERS Safety Report 16469335 (Version 9)
Quarter: 2020Q2

REPORT INFORMATION
  Report Type: Report from Study
  Country: US (occurrence: US)
  Receive Date: 20190624
  Receipt Date: 20200520
  Transmission Date: 20200713
  Serious: Yes (Life-Threatening, Hospitalization, Other)
  Sender: FDA-Public Use
  Company Number: PHEH2019US026146

PATIENT
  Sex: Male

DRUGS (1)
  1. ENTRESTO [Suspect]
     Active Substance: SACUBITRIL\VALSARTAN
     Indication: CARDIAC FAILURE CHRONIC
     Dosage: UNK
     Route: 065

REACTIONS (11)
  - Urticaria [Not Recovered/Not Resolved]
  - Nerve injury [Unknown]
  - Cardiac disorder [Unknown]
  - Impaired healing [Unknown]
  - Product odour abnormal [Unknown]
  - Infection [Unknown]
  - Post procedural infection [Unknown]
  - Near death experience [Unknown]
  - Insomnia [Unknown]
  - Angioedema [Unknown]
  - Lung disorder [Unknown]
